FAERS Safety Report 10029724 (Version 1)
Quarter: 2014Q1

REPORT INFORMATION
  Report Type: Spontaneous
  Country: US (occurrence: None)
  Receive Date: 20140321
  Receipt Date: 20140321
  Transmission Date: 20141002
  Serious: Yes (Hospitalization)
  Sender: FDA-Public Use
  Company Number: None

PATIENT
  Age: 8 Year
  Sex: Male
  Weight: 40 kg

DRUGS (2)
  1. PEG-L-ASPARAGINASE (PEGASPARGASE, ONCOSPAR) [Suspect]
  2. DEXAMETHASONE [Suspect]

REACTIONS (5)
  - Pancreatitis acute [None]
  - Hyperglycaemic hyperosmolar nonketotic syndrome [None]
  - Hypothermia [None]
  - Renal failure acute [None]
  - Dehydration [None]
